FAERS Safety Report 5768935-5 (Version None)
Quarter: 2008Q2

REPORT INFORMATION
  Report Type: 
  Country: None (occurrence: None)
  Receive Date: 20080610
  Receipt Date: 20080529
  Transmission Date: 20081010
  Serious: Yes (Other)
  Sender: FDA-Public Use
  Company Number: 2008AP000224

PATIENT
  Age: 23 Year
  Sex: Female

DRUGS (6)
  1. PAROXETINE HCL [Suspect]
     Indication: DEPRESSION
     Dosage: PO; 0.5 TAB; TAB; PO; QOD; 0.25  TAB; TAB; PO; QD
     Route: 048
     Dates: start: 19970625, end: 19970820
  2. PAROXETINE HCL [Suspect]
     Indication: DEPRESSION
     Dosage: PO; 0.5 TAB; TAB; PO; QOD; 0.25  TAB; TAB; PO; QD
     Route: 048
     Dates: start: 19950530
  3. PAROXETINE HCL [Suspect]
     Indication: DEPRESSION
     Dosage: PO; 0.5 TAB; TAB; PO; QOD; 0.25  TAB; TAB; PO; QD
     Route: 048
     Dates: start: 19951129
  4. PAROXETINE HCL [Suspect]
     Indication: DEPRESSION
     Dosage: PO; 0.5 TAB; TAB; PO; QOD; 0.25  TAB; TAB; PO; QD
     Route: 048
     Dates: start: 19961122
  5. AMITRIPTLINE HCL [Concomitant]
  6. PROPRANOLOL [Concomitant]

REACTIONS (16)
  - AGGRESSION [None]
  - ANOREXIA [None]
  - ANXIETY [None]
  - APATHY [None]
  - DEPRESSED MOOD [None]
  - DRUG WITHDRAWAL SYNDROME [None]
  - FATIGUE [None]
  - FEELING OF DESPAIR [None]
  - IRRITABILITY [None]
  - MOOD SWINGS [None]
  - PANIC ATTACK [None]
  - PARAESTHESIA [None]
  - SUICIDAL IDEATION [None]
  - TEARFULNESS [None]
  - THINKING ABNORMAL [None]
  - TREMOR [None]
